FAERS Safety Report 9297165 (Version 1)
Quarter: 2013Q2

REPORT INFORMATION
  Report Type: Spontaneous
  Country: FR (occurrence: FR)
  Receive Date: 20130520
  Receipt Date: 20130520
  Transmission Date: 20140414
  Serious: Yes (Life-Threatening)
  Sender: FDA-Public Use
  Company Number: FR-MERCK-1302FRA008392

PATIENT
  Age: 79 Year
  Sex: Female
  Weight: 80 kg

DRUGS (5)
  1. AERIUS [Suspect]
     Indication: PRURITUS
     Dosage: UNK
     Route: 048
     Dates: start: 20130204, end: 20130207
  2. JANUMET [Concomitant]
     Indication: TYPE 2 DIABETES MELLITUS
     Dosage: 2 DF, QD
  3. UMULINE NPH [Concomitant]
     Indication: INSULIN-REQUIRING TYPE 2 DIABETES MELLITUS
  4. RAMIPRIL [Concomitant]
     Indication: HYPERTENSION
     Dosage: 1DF, QD
  5. HYDROCHLOROTHIAZIDE (+) IRBESARTAN [Concomitant]
     Indication: HYPERTENSION
     Dosage: 1 DF, QD

REACTIONS (1)
  - Hypoglycaemia [Recovered/Resolved]
